FAERS Safety Report 7821618-X (Version None)
Quarter: 2011Q4

REPORT INFORMATION
  Report Type: 
  Country: None (occurrence: None)
  Receive Date: 20111018
  Receipt Date: 20110810
  Transmission Date: 20120403
  Serious: No
  Sender: FDA-Public Use
  Company Number: US-ASTRAZENECA-2011SE42099

PATIENT
  Age: 55 Year
  Sex: Female

DRUGS (15)
  1. SYMBICORT [Suspect]
     Indication: CHRONIC OBSTRUCTIVE PULMONARY DISEASE
     Dosage: 320 TWO TIMES A DAY
     Route: 055
  2. NEXIUM [Suspect]
     Indication: GASTROOESOPHAGEAL REFLUX DISEASE
     Route: 048
     Dates: start: 20000101
  3. NEXIUM [Suspect]
     Route: 048
  4. CLONIDINE [Concomitant]
  5. SPIRIVA [Concomitant]
  6. VISTARIL [Concomitant]
  7. XANAX [Concomitant]
  8. LOVASTATIN [Concomitant]
  9. CELEXA [Concomitant]
  10. CLARITIN [Concomitant]
  11. VIMOVO [Suspect]
     Indication: ARTHRITIS
     Dosage: 500/20 TWO TIMES A DAY
     Route: 048
     Dates: start: 20110701, end: 20110801
  12. LISINOPRIL [Concomitant]
  13. ZYRTEC [Concomitant]
  14. OXYCONT [Concomitant]
  15. LEVOTHYROXINE SODIUM [Concomitant]

REACTIONS (5)
  - INAPPROPRIATE SCHEDULE OF DRUG ADMINISTRATION [None]
  - THROAT IRRITATION [None]
  - CHEST DISCOMFORT [None]
  - GASTROOESOPHAGEAL REFLUX DISEASE [None]
  - CHRONIC OBSTRUCTIVE PULMONARY DISEASE [None]
